FAERS Safety Report 6112527-5 (Version None)
Quarter: 2009Q1

REPORT INFORMATION
  Report Type: 
  Country: None (occurrence: None)
  Receive Date: 20090312
  Receipt Date: 20090226
  Transmission Date: 20090719
  Serious: Yes (Hospitalization, Other)
  Sender: FDA-Public Use
  Company Number: SE-CELGENEUS-150-20484-09021690

PATIENT
  Age: 54 Year
  Sex: Female

DRUGS (1)
  1. INNOHEP [Suspect]
     Indication: PROPHYLAXIS
     Dosage: 3500-4000 U ONCE 6-8 HOURS
     Route: 058

REACTIONS (1)
  - PULMONARY EMBOLISM [None]
